FAERS Safety Report 25440257 (Version 1)
Quarter: 2025Q2

REPORT INFORMATION
  Report Type: Spontaneous
  Country: RO (occurrence: RO)
  Receive Date: 20250616
  Receipt Date: 20250616
  Transmission Date: 20250716
  Serious: Yes (Other)
  Sender: BIOTEST
  Company Number: RO-BIOTEST-015733

PATIENT
  Age: 44 Year
  Sex: Male

DRUGS (3)
  1. HUMAN IMMUNOGLOBULIN G [Suspect]
     Active Substance: HUMAN IMMUNOGLOBULIN G
     Indication: Acute polyneuropathy
  2. UNSPECIFIED INGREDIENT [Concomitant]
     Active Substance: UNSPECIFIED INGREDIENT
  3. Low molecular weight heparin therapy [Concomitant]

REACTIONS (2)
  - Splenic infarction [Unknown]
  - Off label use [Unknown]
